FAERS Safety Report 13451172 (Version 1)
Quarter: 2017Q2

REPORT INFORMATION
  Report Type: Spontaneous
  Country: US (occurrence: US)
  Receive Date: 20170417
  Receipt Date: 20170417
  Transmission Date: 20170830
  Serious: Yes (Disabling)
  Sender: FDA-Public Use
  Company Number: None

PATIENT
  Age: 62 Year
  Sex: Female
  Weight: 53.1 kg

DRUGS (6)
  1. PRIMROSE OIL [Concomitant]
  2. TURMERIC [Concomitant]
     Active Substance: HERBALS\TURMERIC
  3. VAGIFEM [Concomitant]
     Active Substance: ESTRADIOL
  4. VITAMIN D [Concomitant]
     Active Substance: CHOLECALCIFEROL
  5. CLARITHROMYCIN. [Suspect]
     Active Substance: CLARITHROMYCIN
     Indication: SINUSITIS
     Dosage: ?          QUANTITY:1 TABLET(S);?
     Route: 048
     Dates: start: 20170313, end: 20170322
  6. VITAMIN C [Concomitant]
     Active Substance: ASCORBIC ACID

REACTIONS (2)
  - Dysgeusia [None]
  - Tinnitus [None]

NARRATIVE: CASE EVENT DATE: 20170405
